FAERS Safety Report 13085685 (Version 1)
Quarter: 2017Q1

REPORT INFORMATION
  Report Type: Spontaneous
  Country: US (occurrence: US)
  Receive Date: 20170104
  Receipt Date: 20170104
  Transmission Date: 20170509
  Serious: No
  Sender: FDA-Public Use
  Company Number: US-MEDA-2016120065

PATIENT
  Age: 52 Year
  Sex: Female
  Weight: 43 kg

DRUGS (1)
  1. COLYTE [Suspect]
     Active Substance: POLYETHYLENE GLYCOL 3350\POTASSIUM CHLORIDE\SODIUM BICARBONATE\SODIUM CHLORIDE\SODIUM SULFATE ANHYDROUS
     Indication: COLONOSCOPY
     Route: 048
     Dates: start: 2008

REACTIONS (4)
  - Dehydration [Recovering/Resolving]
  - Chills [Recovering/Resolving]
  - Product container seal issue [Unknown]
  - Drug effect incomplete [Unknown]

NARRATIVE: CASE EVENT DATE: 2008
